FAERS Safety Report 7520188-3 (Version None)
Quarter: 2011Q2

REPORT INFORMATION
  Report Type: 
  Country: None (occurrence: None)
  Receive Date: 20110602
  Receipt Date: 20110127
  Transmission Date: 20111010
  Serious: No
  Sender: FDA-Public Use
  Company Number: US-BAYER-2011-037637

PATIENT
  Age: 75 Year
  Sex: Male
  Weight: 83.9 kg

DRUGS (4)
  1. LIPITOR [Concomitant]
     Dosage: UNK
  2. ALEVE (CAPLET) [Suspect]
     Indication: NASOPHARYNGITIS
     Dosage: 2 DF, QD, BOTTLE COUNT 200S
     Route: 048
     Dates: start: 20110101
  3. METFORMIN HCL [Concomitant]
     Dosage: UNK
  4. AMLODIPINE [Concomitant]
     Dosage: UNK

REACTIONS (1)
  - NO ADVERSE EVENT [None]
